FAERS Safety Report 10567586 (Version 2)
Quarter: 2014Q4

REPORT INFORMATION
  Report Type: Spontaneous
  Country: US (occurrence: None)
  Receive Date: 20141030
  Receipt Date: 20141031
  Transmission Date: 20150529
  Serious: Yes (Death)
  Sender: FDA-Public Use
  Company Number: GBI002627

PATIENT
  Age: 36 Year
  Sex: Male

DRUGS (1)
  1. COAGULATION FACTOR IX HUMAN [Suspect]
     Active Substance: COAGULATION FACTOR IX HUMAN
     Indication: FACTOR IX DEFICIENCY
     Route: 042

REACTIONS (4)
  - Intra-abdominal haemorrhage [None]
  - Abdominal pain [None]
  - Intestinal perforation [None]
  - Intestinal obstruction [None]

NARRATIVE: CASE EVENT DATE: 2014
